FAERS Safety Report 10844045 (Version 1)
Quarter: 2015Q1

REPORT INFORMATION
  Report Type: Report from Study
  Country: US (occurrence: US)
  Receive Date: 20150220
  Receipt Date: 20150220
  Transmission Date: 20150721
  Serious: Yes (Hospitalization)
  Sender: FDA-Public Use
  Company Number: US-ABBVIE-14P-163-1260218-00

PATIENT
  Age: 49 Year
  Sex: Female

DRUGS (3)
  1. DESOXIMETASONE. [Concomitant]
     Active Substance: DESOXIMETASONE
     Indication: PSORIASIS
     Dosage: 60 GRAM TUBE, APPLIED TO AFFECTED AREAS DAILY
     Route: 061
  2. HUMIRA [Suspect]
     Active Substance: ADALIMUMAB
     Indication: PSORIASIS
     Dates: start: 201007
  3. HUMIRA [Suspect]
     Active Substance: ADALIMUMAB

REACTIONS (5)
  - Pleural effusion [Recovered/Resolved]
  - Cardiac failure congestive [Recovered/Resolved]
  - Psoriasis [Recovered/Resolved]
  - Bronchitis [Recovered/Resolved]
  - Influenza [Recovered/Resolved]

NARRATIVE: CASE EVENT DATE: 201102
